FAERS Safety Report 6264726-X (Version None)
Quarter: 2009Q3

REPORT INFORMATION
  Report Type: 
  Country: None (occurrence: None)
  Receive Date: 20090710
  Receipt Date: 20090702
  Transmission Date: 20100115
  Serious: Yes (Hospitalization)
  Sender: FDA-Public Use
  Company Number: HK-PFIZER INC-2009235253

PATIENT
  Age: 44 Year

DRUGS (4)
  1. CELECOXIB [Suspect]
     Indication: BREAST CANCER
     Dosage: UNK, DAILY
     Dates: start: 20090606
  2. CYCLOPHOSPHAMIDE [Suspect]
     Indication: BREAST CANCER
     Dosage: 770 MG, UNK
     Route: 042
     Dates: start: 20090603
  3. EPIRUBICIN HCL [Suspect]
     Indication: BREAST CANCER
     Dosage: 154 MG, CYCLIC
     Route: 042
     Dates: start: 20090603
  4. FLUOROURACIL [Suspect]
     Dosage: 770 MG, CYCLIC
     Route: 042
     Dates: start: 20090603

REACTIONS (1)
  - FEBRILE NEUTROPENIA [None]
